FAERS Safety Report 9367755 (Version 1)
Quarter: 2013Q2

REPORT INFORMATION
  Report Type: Spontaneous
  Country: US (occurrence: US)
  Receive Date: 20130625
  Receipt Date: 20130625
  Transmission Date: 20140414
  Serious: No
  Sender: FDA-Public Use
  Company Number: US-ASTELLAS-2011US007457

PATIENT
  Age: 65 Year
  Sex: Female

DRUGS (3)
  1. VESICARE [Suspect]
     Indication: URETHRAL STENOSIS
     Dosage: 5 MG, UNKNOWN/D
     Route: 048
     Dates: start: 20110401, end: 20110505
  2. VESICARE [Suspect]
     Dosage: 5 MG, UID/QD
     Route: 048
     Dates: start: 20120207
  3. NITROFURANTOIN MONOHYDRATE/MACROCRYSTALS [Concomitant]
     Indication: PRODUCT USED FOR UNKNOWN INDICATION
     Dosage: UNK
     Route: 065

REACTIONS (8)
  - Off label use [Unknown]
  - Oropharyngeal pain [Unknown]
  - Dry eye [Unknown]
  - Dry mouth [Unknown]
  - Fatigue [Unknown]
  - Lip swelling [Unknown]
  - Pruritus [Unknown]
  - Rash [Unknown]
